FAERS Safety Report 9875940 (Version 2)
Quarter: 2014Q1

REPORT INFORMATION
  Report Type: Spontaneous
  Country: GB (occurrence: None)
  Receive Date: 20140204
  Receipt Date: 20140210
  Transmission Date: 20141002
  Serious: Yes (Other)
  Sender: FDA-Public Use
  Company Number: AUR-APL-2014-01005

PATIENT
  Age: 38 Year
  Sex: Male
  Weight: 71 kg

DRUGS (4)
  1. MIRTAZAPINE (MIRTAZAPINE) [Suspect]
     Indication: DEPRESSED MOOD
     Route: 048
     Dates: start: 20131111, end: 20131212
  2. LANSOPRAZOLE (LANSOPRAZOLE) [Suspect]
     Indication: DYSPEPSIA
     Route: 048
     Dates: start: 20131111, end: 20131212
  3. CITALOPRAM (CITALOPRAM) [Concomitant]
  4. PREGABALIN (PREGABALIN) [Concomitant]

REACTIONS (2)
  - Hepatitis acute [None]
  - Blood cholesterol increased [None]
